FAERS Safety Report 9277403 (Version 4)
Quarter: 2014Q2

REPORT INFORMATION
  Report Type: Spontaneous
  Country: US (occurrence: US)
  Receive Date: 20130508
  Receipt Date: 20140523
  Transmission Date: 20141212
  Serious: Yes (Hospitalization)
  Sender: FDA-Public Use
  Company Number: US-BAYER-2013-056604

PATIENT
  Age: 37 Year
  Sex: Female
  Weight: 79.37 kg

DRUGS (20)
  1. YAZ [Suspect]
     Indication: ACNE
     Dosage: UNK
     Route: 048
     Dates: start: 20071002, end: 20071011
  2. YAZ [Suspect]
     Indication: PREMENSTRUAL DYSPHORIC DISORDER
  3. YAZ [Suspect]
     Indication: PREMENSTRUAL SYNDROME
  4. ALBUTEROL [Concomitant]
     Dosage: 102 PUFF(S), PRN
     Route: 045
  5. ADVAIR [Concomitant]
     Dosage: 500/50, ONE, BID
     Route: 048
  6. CELEXA [Concomitant]
     Dosage: 20 MG, BID
     Route: 048
  7. XANAX [Concomitant]
     Dosage: 0.25 MG, BID
     Route: 048
  8. FLONASE [Concomitant]
     Dosage: 1 PUFF(S), EACH NOSTRIL, BID
     Route: 045
  9. NASONEX [Concomitant]
     Dosage: ONE SPRAY EACH NOSTRIL DAILY
     Route: 045
  10. ZANTAC [Concomitant]
     Dosage: 150 MG, DAILY
     Route: 048
  11. ASMANEX [Concomitant]
     Dosage: ONE DAILY
     Route: 048
  12. TAVIST [Concomitant]
  13. FORADIL [Concomitant]
  14. AMOXICILLIN [Concomitant]
     Dosage: 500 MG CAPSULES, 30 DISPENSED FOR 10 DAY SUPPLY
  15. PREDNISONE [Concomitant]
     Dosage: 10 MG TABLETS, 20 DISPENSED FOR 10 DAY SUPPLY
  16. PROVENTIL HFA [Concomitant]
     Dosage: 90 MCG
  17. BUSPIRONE [Concomitant]
     Dosage: 15 MG TABLETS, 30 DISPENSED
  18. LEXAPRO [Concomitant]
     Indication: DEPRESSION
     Dosage: UNK
     Dates: start: 2007
  19. ZOCOR [Concomitant]
     Indication: BLOOD CHOLESTEROL INCREASED
     Dosage: UNK
     Dates: start: 2007
  20. SYMBICORT [Concomitant]
     Indication: ASTHMA
     Dosage: UNK
     Dates: start: 2007

REACTIONS (7)
  - Cerebrovascular accident [None]
  - Injury [None]
  - Pain [None]
  - Emotional distress [None]
  - Fear [None]
  - Anxiety [None]
  - Pain [None]
